FAERS Safety Report 18475447 (Version 2)
Quarter: 2021Q1

REPORT INFORMATION
  Report Type: Report from Study
  Country: IN (occurrence: IN)
  Receive Date: 20201106
  Receipt Date: 20210105
  Transmission Date: 20210419
  Serious: Yes (Other)
  Sender: FDA-Public Use
  Company Number: NVSC2020IN294845

PATIENT
  Age: 34 Year
  Sex: Male

DRUGS (1)
  1. TASIGNA [Suspect]
     Active Substance: NILOTINIB
     Indication: CHRONIC MYELOID LEUKAEMIA
     Dosage: 400 MG, BID
     Route: 065
     Dates: start: 20181206, end: 20201225

REACTIONS (2)
  - Skin disorder [Unknown]
  - Hepatic infection [Not Recovered/Not Resolved]

NARRATIVE: CASE EVENT DATE: 20201024
